FAERS Safety Report 17880223 (Version 20)
Quarter: 2022Q3

REPORT INFORMATION
  Report Type: Report from Study
  Country: JP (occurrence: JP)
  Receive Date: 20200610
  Receipt Date: 20220824
  Transmission Date: 20221027
  Serious: Yes (Hospitalization, Other)
  Sender: FDA-Public Use
  Company Number: JP-ONO-2020JP013451

PATIENT
  Age: 72 Year
  Sex: Male
  Weight: 67.5 kg

DRUGS (25)
  1. ETELCALCETIDE [Suspect]
     Active Substance: ETELCALCETIDE
     Indication: Hyperparathyroidism secondary
     Dosage: 5 MILLIGRAM, Q56H
     Route: 065
     Dates: start: 20191118, end: 20200720
  2. ETELCALCETIDE [Suspect]
     Active Substance: ETELCALCETIDE
     Dosage: 5 MILLIGRAM, Q56H
     Route: 065
     Dates: start: 20200911, end: 20201014
  3. ETELCALCETIDE [Suspect]
     Active Substance: ETELCALCETIDE
     Dosage: 5 MILLIGRAM, Q56H
     Route: 065
     Dates: start: 20201102, end: 20210830
  4. ETELCALCETIDE [Suspect]
     Active Substance: ETELCALCETIDE
     Dosage: 2.5 MILLIGRAM, Q84H
     Route: 065
     Dates: start: 20210903
  5. DARBEPOETIN ALFA [Concomitant]
     Active Substance: DARBEPOETIN ALFA
     Dosage: 10 MICROGRAM, QWK
     Route: 042
     Dates: end: 20190906
  6. DARBEPOETIN ALFA [Concomitant]
     Active Substance: DARBEPOETIN ALFA
     Dosage: 20 MICROGRAM, QWK
     Route: 042
     Dates: start: 20190913, end: 20200117
  7. DARBEPOETIN ALFA [Concomitant]
     Active Substance: DARBEPOETIN ALFA
     Dosage: 15 MICROGRAM, QWK
     Route: 042
     Dates: start: 20200124, end: 20200904
  8. DARBEPOETIN ALFA [Concomitant]
     Active Substance: DARBEPOETIN ALFA
     Dosage: 90 MICROGRAM, QWK
     Route: 042
     Dates: start: 20200911, end: 20201204
  9. DARBEPOETIN ALFA [Concomitant]
     Active Substance: DARBEPOETIN ALFA
     Dosage: 60 MICROGRAM, QWK
     Route: 042
     Dates: start: 20201211, end: 20201218
  10. DARBEPOETIN ALFA [Concomitant]
     Active Substance: DARBEPOETIN ALFA
     Dosage: 40 MICROGRAM, QWK
     Route: 042
     Dates: start: 20201225, end: 20210108
  11. DARBEPOETIN ALFA [Concomitant]
     Active Substance: DARBEPOETIN ALFA
     Dosage: 20 MICROGRAM, QWK
     Route: 042
     Dates: start: 20210115, end: 20210122
  12. DARBEPOETIN ALFA [Concomitant]
     Active Substance: DARBEPOETIN ALFA
     Dosage: 10 MICROGRAM, QWK
     Route: 042
     Dates: start: 20210129, end: 20210205
  13. DARBEPOETIN ALFA [Concomitant]
     Active Substance: DARBEPOETIN ALFA
     Dosage: 5 MICROGRAM, QWK
     Route: 042
     Dates: start: 20210212, end: 20210319
  14. DARBEPOETIN ALFA [Concomitant]
     Active Substance: DARBEPOETIN ALFA
     Dosage: 10 MICROGRAM, QWK
     Route: 042
     Dates: start: 20210326
  15. MAXACALCITOL [Concomitant]
     Active Substance: MAXACALCITOL
     Indication: Hyperparathyroidism secondary
     Dosage: 10 MICROGRAM, Q84H
     Route: 042
     Dates: start: 20190614, end: 20200720
  16. MAXACALCITOL [Concomitant]
     Active Substance: MAXACALCITOL
     Dosage: 10 MICROGRAM, Q84H
     Route: 042
     Dates: start: 20200911, end: 20201012
  17. MAXACALCITOL [Concomitant]
     Active Substance: MAXACALCITOL
     Dosage: 10 MICROGRAM, Q84H
     Route: 042
     Dates: start: 20201102, end: 20201209
  18. MAXACALCITOL [Concomitant]
     Active Substance: MAXACALCITOL
     Dosage: 5 MICROGRAM, Q84H
     Route: 042
     Dates: start: 20201211
  19. FERRIC CITRATE ANHYDROUS [Concomitant]
     Active Substance: FERRIC CITRATE ANHYDROUS
     Dosage: 750 MILLIGRAM, QD
     Route: 065
     Dates: end: 20200710
  20. FOSRENOL [Concomitant]
     Active Substance: LANTHANUM CARBONATE
     Dosage: 750 MILLIGRAM, QD
     Route: 048
     Dates: start: 20210303, end: 20210408
  21. FOSRENOL [Concomitant]
     Active Substance: LANTHANUM CARBONATE
     Dosage: 1500 MILLIGRAM, QD
     Dates: start: 20210409, end: 20210705
  22. HEPARIN [Concomitant]
     Active Substance: HEPARIN SODIUM
     Dosage: UNK
     Route: 065
     Dates: start: 20200226
  23. FOSRENOL [Concomitant]
     Active Substance: LANTHANUM CARBONATE
     Dosage: 750 MILLIGRAM, QD
     Route: 048
     Dates: end: 20200306
  24. Fesin [Concomitant]
     Dosage: 40 MG, QW
     Route: 065
     Dates: start: 20220418
  25. CALCIUM CARBONATE [Concomitant]
     Active Substance: CALCIUM CARBONATE
     Dosage: 1500 MILLIGRAM, QD
     Route: 048
     Dates: start: 20220304

REACTIONS (6)
  - Wound infection [Recovering/Resolving]
  - Shunt occlusion [Recovered/Resolved]
  - Cardiac failure [Recovering/Resolving]
  - Shunt stenosis [Recovered/Resolved]
  - Shunt stenosis [Recovered/Resolved]
  - Anaemia [Recovering/Resolving]

NARRATIVE: CASE EVENT DATE: 20200515
